FAERS Safety Report 25587830 (Version 1)
Quarter: 2025Q3

REPORT INFORMATION
  Report Type: Spontaneous
  Country: EU (occurrence: EU)
  Receive Date: 20250721
  Receipt Date: 20250721
  Transmission Date: 20251020
  Serious: Yes (Hospitalization)
  Sender: MERCK SHARP & DOHME LLC
  Company Number: None

PATIENT
  Age: 72 Year
  Sex: Female

DRUGS (6)
  1. KEYTRUDA [Suspect]
     Active Substance: PEMBROLIZUMAB
     Indication: Uterine cancer
     Dosage: 200 MG EVERY 3 WEEKS; STRENGTH: 25MG
     Route: 042
     Dates: start: 20240312, end: 20250604
  2. THYROXINE [Concomitant]
     Active Substance: LEVOTHYROXINE
     Dosage: 1X1; STRENGTH: 0.114MG
     Route: 048
  3. LENVIMA [Concomitant]
     Active Substance: LENVATINIB
     Indication: Uterine cancer
     Dosage: 20 MG 1X1; STRENGTH: 12.25MG
     Route: 048
     Dates: start: 20240316, end: 202506
  4. LENVIMA [Concomitant]
     Active Substance: LENVATINIB
     Indication: Uterine cancer
     Dosage: 10MG 1X1
     Route: 048
     Dates: start: 202506, end: 20250618
  5. CANDESARTAN [Concomitant]
     Active Substance: CANDESARTAN
     Indication: Blood pressure measurement
     Dosage: 1X1; STRENGTH: 8MG
     Route: 048
  6. AMLODIPINE BESYLATE [Concomitant]
     Active Substance: AMLODIPINE BESYLATE
     Indication: Blood pressure measurement
     Dosage: 1X1; STRENGTH: 6.9348
     Route: 048

REACTIONS (7)
  - Conjunctivitis [Not Recovered/Not Resolved]
  - Injury corneal [Not Recovered/Not Resolved]
  - Uveitis [Not Recovered/Not Resolved]
  - Eye ulcer [Not Recovered/Not Resolved]
  - Vision blurred [Not Recovered/Not Resolved]
  - Conjunctivitis viral [Not Recovered/Not Resolved]
  - Eye operation [Not Recovered/Not Resolved]

NARRATIVE: CASE EVENT DATE: 20250101
